FAERS Safety Report 6835217-X (Version None)
Quarter: 2010Q3

REPORT INFORMATION
  Report Type: 
  Country: None (occurrence: None)
  Receive Date: 20100713
  Receipt Date: 20100629
  Transmission Date: 20110219
  Serious: Yes (Death, Other)
  Sender: FDA-Public Use
  Company Number: TR-RANBAXY-2010RR-35382

PATIENT
  Age: 55 Year
  Sex: Male

DRUGS (3)
  1. METFORMIN HCL [Suspect]
     Indication: SUICIDE ATTEMPT
     Dosage: 850 MG, UNK
     Route: 048
  2. GLIPIZIDE [Concomitant]
     Indication: TYPE 2 DIABETES MELLITUS
  3. ROSIGLITAZONE [Concomitant]

REACTIONS (5)
  - CARDIAC ARREST [None]
  - HYPOTENSION [None]
  - LACTIC ACIDOSIS [None]
  - OVERDOSE [None]
  - RESPIRATORY ARREST [None]
